FAERS Safety Report 8338920-8 (Version None)
Quarter: 2012Q2

REPORT INFORMATION
  Report Type: 
  Country: None (occurrence: None)
  Receive Date: 20120506
  Receipt Date: 20060620
  Transmission Date: 20120825
  Serious: Yes (Hospitalization, Other)
  Sender: FDA-Public Use
  Company Number: PHFR2006GB006883

PATIENT

DRUGS (12)
  1. ZOMETA [Suspect]
     Dosage: 4 MG, UNK
     Route: 042
     Dates: start: 20061026
  2. SODIUM CHLORIDE [Concomitant]
     Dosage: 250 ML, UNK
     Route: 042
     Dates: start: 20061204
  3. ZOMETA [Suspect]
     Dosage: 4 MG, UNK
     Route: 042
     Dates: start: 20060731
  4. SODIUM CHLORIDE [Concomitant]
     Dosage: 100 ML, UNK
     Route: 042
     Dates: start: 20061023
  5. SODIUM CHLORIDE [Concomitant]
     Dosage: 250 ML, UNK
     Route: 042
     Dates: start: 20061023
  6. SODIUM CHLORIDE [Concomitant]
     Dosage: 100 ML, UNK
     Route: 042
     Dates: start: 20060620
  7. ZOMETA [Suspect]
     Dosage: 4 MG, UNK
     Route: 042
     Dates: start: 20060620
  8. ZOMETA [Suspect]
     Dosage: 4 MG, UNK
     Route: 042
     Dates: start: 20061204
  9. SODIUM CHLORIDE [Concomitant]
     Dosage: 100 ML, UNK
     Route: 042
     Dates: start: 20061204
  10. SODIUM CHLORIDE [Concomitant]
     Dosage: 250 ML, FLUSH
     Dates: start: 20060620, end: 20060620
  11. SODIUM CHLORIDE [Concomitant]
     Dosage: 250 ML, UNK
     Route: 042
     Dates: start: 20060731
  12. SODIUM CHLORIDE [Concomitant]
     Dosage: 100 ML, UNK
     Route: 042
     Dates: start: 20060731

REACTIONS (11)
  - LETHARGY [None]
  - CONSTIPATION [None]
  - NAUSEA [None]
  - DECREASED APPETITE [None]
  - GENERAL PHYSICAL HEALTH DETERIORATION [None]
  - FATIGUE [None]
  - BLOOD CREATININE INCREASED [None]
  - PAIN [None]
  - INSOMNIA [None]
  - METASTASES TO BONE [None]
  - HAEMOGLOBIN ABNORMAL [None]
